FAERS Safety Report 11909230 (Version 1)
Quarter: 2016Q1

REPORT INFORMATION
  Report Type: Report from Study
  Country: CN (occurrence: CN)
  Receive Date: 20160112
  Receipt Date: 20160112
  Transmission Date: 20160526
  Serious: Yes (Death, Hospitalization)
  Sender: FDA-Public Use
  Company Number: CN-ROCHE-1677359

PATIENT
  Sex: Female
  Weight: 47 kg

DRUGS (1)
  1. AVASTIN [Suspect]
     Active Substance: BEVACIZUMAB
     Indication: RECTAL CANCER
     Route: 041
     Dates: start: 20150416

REACTIONS (6)
  - Cough [Unknown]
  - Lymphadenopathy [Unknown]
  - Radiation pneumonitis [Unknown]
  - Nasopharyngitis [Unknown]
  - Abdominal pain [Unknown]
  - Lung infection [Fatal]
